FAERS Safety Report 18061000 (Version 2)
Quarter: 2020Q3

REPORT INFORMATION
  Report Type: Report from Study
  Country: MY (occurrence: MY)
  Receive Date: 20200723
  Receipt Date: 20200905
  Transmission Date: 20201103
  Serious: Yes (Death, Other)
  Sender: FDA-Public Use
  Company Number: NVSC2020MY060943

PATIENT
  Age: 64 Year
  Sex: Female

DRUGS (1)
  1. COSENTYX [Suspect]
     Active Substance: SECUKINUMAB
     Indication: PSORIASIS
     Dosage: 150 MG, UNKNOWN
     Route: 058
     Dates: start: 20191106, end: 20191204

REACTIONS (3)
  - White blood cell count decreased [Unknown]
  - Leukaemia [Unknown]
  - Death [Fatal]

NARRATIVE: CASE EVENT DATE: 20200901
